FAERS Safety Report 24666426 (Version 3)
Quarter: 2024Q4

REPORT INFORMATION
  Report Type: Spontaneous
  Country: JP (occurrence: JP)
  Receive Date: 20241126
  Receipt Date: 20241213
  Transmission Date: 20250114
  Serious: Yes (Other)
  Sender: OTSUKA
  Company Number: JP-OTSUKA-2024_031451

PATIENT
  Age: 84 Year

DRUGS (11)
  1. SAMSCA [Suspect]
     Active Substance: TOLVAPTAN
     Indication: Product used for unknown indication
     Dosage: 0.5T 1X AFTER BREAKFAST, 15 MG X 0.5/DAY
     Route: 048
     Dates: start: 20240607
  2. QUETIAPINE FUMARATE [Suspect]
     Active Substance: QUETIAPINE FUMARATE
     Indication: Product used for unknown indication
     Dosage: 1 TABLET
     Route: 048
     Dates: start: 202412
  3. QUETIAPINE FUMARATE [Suspect]
     Active Substance: QUETIAPINE FUMARATE
     Indication: Product used for unknown indication
     Dosage: 1 TABLET 1 X BEFORE BEDTIME
     Route: 048
     Dates: start: 202412
  4. REBAMIPIDE [Concomitant]
     Active Substance: REBAMIPIDE
     Indication: Product used for unknown indication
     Dosage: 2T 2X AFTER BREAKFAST AND DINNER
     Route: 048
     Dates: start: 202406
  5. MIYA-BM [Concomitant]
     Active Substance: CLOSTRIDIUM BUTYRICUM SPORES STRAIN M-55
     Indication: Product used for unknown indication
     Dosage: 2G
     Route: 048
     Dates: start: 202406
  6. ALLOPURINOL [Concomitant]
     Active Substance: ALLOPURINOL
     Indication: Product used for unknown indication
     Dosage: 2 TABLET
     Route: 048
     Dates: start: 202406
  7. SODIUM FERROUS CITRATE [Concomitant]
     Active Substance: SODIUM FERROUS CITRATE
     Indication: Product used for unknown indication
     Dosage: 2 TABLETS 2 X AFTER BREAKFAST AND DINNER
     Route: 048
     Dates: start: 202406, end: 2024
  8. SODIUM FERROUS CITRATE [Concomitant]
     Active Substance: SODIUM FERROUS CITRATE
     Dosage: 2 TABLETS 2 X AFTER BREAKFAST AND DINNER
     Route: 048
     Dates: start: 202412
  9. DAYVIGO [Concomitant]
     Active Substance: LEMBOREXANT
     Indication: Product used for unknown indication
     Dosage: 1 TABLET 1 X BEFORE BEDTIME
     Route: 048
     Dates: start: 202406, end: 2024
  10. DAYVIGO [Concomitant]
     Active Substance: LEMBOREXANT
     Dosage: 1 TABLET 1 X BEFORE BEDTIME
     Route: 048
     Dates: start: 202412
  11. MAGNESIUM OXIDE [Concomitant]
     Active Substance: MAGNESIUM OXIDE
     Indication: Product used for unknown indication
     Dosage: 1 SACHET 1 X BEFORE BEDTIME
     Route: 048
     Dates: start: 202412

REACTIONS (1)
  - Sinus node dysfunction [Unknown]
